FAERS Safety Report 5313096-X (Version None)
Quarter: 2007Q1

REPORT INFORMATION
  Report Type: 
  Country: None (occurrence: None)
  Receive Date: 20070201
  Receipt Date: 20061121
  Transmission Date: 20070707
  Serious: No
  Sender: FDA-Public Use
  Company Number: VNL_0303_2006

PATIENT
  Age: 64 Year
  Sex: Male
  Weight: 117.9352 kg

DRUGS (5)
  1. APOKYN [Suspect]
     Indication: PARKINSON'S DISEASE
     Dosage: 0.2 ML PRN SC
     Route: 058
     Dates: start: 20061001, end: 20060101
  2. APOKYN [Suspect]
     Indication: PARKINSON'S DISEASE
     Dosage: 0.2 ML PRN SC
     Route: 058
     Dates: start: 20060101
  3. ASPIRIN [Concomitant]
  4. SINEMET [Concomitant]
  5. TWO MEDICATIONS FOR THE HEART ATTACK [Concomitant]

REACTIONS (3)
  - DYSGEUSIA [None]
  - FLATULENCE [None]
  - SOMNOLENCE [None]
